FAERS Safety Report 7462037-8 (Version None)
Quarter: 2011Q2

REPORT INFORMATION
  Report Type: 
  Country: None (occurrence: None)
  Receive Date: 20110506
  Receipt Date: 20110118
  Transmission Date: 20111010
  Serious: Yes (Hospitalization)
  Sender: FDA-Public Use
  Company Number: US-BAYER-201034560NA

PATIENT
  Sex: Female
  Weight: 58.957 kg

DRUGS (8)
  1. BUSPAR [Concomitant]
     Indication: ANXIETY
     Dosage: UNK
     Dates: start: 20060101
  2. FLUCONAZOLE [Concomitant]
     Dosage: 150 MG, UNK
  3. PHENAZOPYRIDINE HCL TAB [Concomitant]
     Indication: BURNING SENSATION
  4. BUSPAR [Concomitant]
     Indication: POST-TRAUMATIC STRESS DISORDER
  5. PHENAZOPYRIDINE HCL TAB [Concomitant]
     Indication: PAIN
     Dosage: 200 MG, TID
  6. CIPROFLOXACIN HYDROCHLORIDE [Concomitant]
     Dosage: 250 MG, UNK
  7. YASMIN [Suspect]
     Route: 048
     Dates: start: 20080401, end: 20090301
  8. FAMOTIDINE [Concomitant]
     Dosage: 20 MG, UNK
     Dates: start: 20091104

REACTIONS (7)
  - ABDOMINAL PAIN UPPER [None]
  - NAUSEA [None]
  - VOMITING [None]
  - EMOTIONAL DISTRESS [None]
  - CHOLECYSTITIS [None]
  - CHOLECYSTITIS CHRONIC [None]
  - PYREXIA [None]
